FAERS Safety Report 17915625 (Version 2)
Quarter: 2021Q2

REPORT INFORMATION
  Report Type: Spontaneous
  Country: UA (occurrence: UA)
  Receive Date: 20200619
  Receipt Date: 20210629
  Transmission Date: 20210717
  Serious: Yes (Other)
  Sender: FDA-Public Use
  Company Number: UA-TEVA-2020-UA-1787880

PATIENT
  Sex: Female

DRUGS (1)
  1. ALACTIN [Suspect]
     Active Substance: CABERGOLINE
     Dosage: 8 TABLETS IN PACKAGE, TAKEN IN THURSDAY
     Route: 065

REACTIONS (5)
  - Headache [Unknown]
  - Dizziness [Unknown]
  - Visual impairment [Recovered/Resolved]
  - Poor quality product administered [Unknown]
  - Loss of consciousness [Recovered/Resolved]

NARRATIVE: CASE EVENT DATE: 20200604
